FAERS Safety Report 26083317 (Version 1)
Quarter: 2025Q4

REPORT INFORMATION
  Report Type: Spontaneous
  Country: US (occurrence: US)
  Receive Date: 20251124
  Receipt Date: 20251124
  Transmission Date: 20260117
  Serious: No
  Sender: AVADEL CNS PHARMACEUTICALS, LLC
  Company Number: US-AVADEL CNS PHARMACEUTICALS, LLC-2025AVA02331

PATIENT
  Sex: Female

DRUGS (2)
  1. LUMRYZ [Suspect]
     Active Substance: SODIUM OXYBATE
     Dosage: 4.5 G
     Dates: start: 20250905
  2. NUVIGIL [Concomitant]
     Active Substance: ARMODAFINIL
     Dosage: UNK

REACTIONS (1)
  - Feeling jittery [Not Recovered/Not Resolved]

NARRATIVE: CASE EVENT DATE: 20250908
